FAERS Safety Report 21688224 (Version 1)
Quarter: 2022Q4

REPORT INFORMATION
  Report Type: Spontaneous
  Country: US (occurrence: None)
  Receive Date: 20221205
  Receipt Date: 20221205
  Transmission Date: 20230113
  Serious: Yes (Other)
  Sender: FDA-Public Use
  Company Number: None

PATIENT
  Age: 36 Year
  Sex: Female
  Weight: 56.25 kg

DRUGS (1)
  1. AJOVY [Suspect]
     Active Substance: FREMANEZUMAB-VFRM
     Indication: Migraine
     Dosage: OTHER QUANTITY : 1 INJECTION(S);?OTHER FREQUENCY : ONCE MONTHLY;?
     Route: 030
     Dates: start: 20221027

REACTIONS (11)
  - Fatigue [None]
  - Headache [None]
  - Nausea [None]
  - Arthralgia [None]
  - Malaise [None]
  - Arthropod bite [None]
  - Injection site pruritus [None]
  - Injection site pain [None]
  - Injection site erythema [None]
  - Injection site swelling [None]
  - Injection site warmth [None]

NARRATIVE: CASE EVENT DATE: 20221128
